FAERS Safety Report 5264295-7 (Version None)
Quarter: 2007Q1

REPORT INFORMATION
  Report Type: 
  Country: None (occurrence: None)
  Receive Date: 20070309
  Receipt Date: 20070227
  Transmission Date: 20070707
  Serious: Yes (Disabling)
  Sender: FDA-Public Use
  Company Number: OSCN-GE-0702S-0100

PATIENT
  Sex: Female
  Weight: 80 kg

DRUGS (1)
  1. OMNISCAN [Suspect]
     Dosage: SINGLE DOSE

REACTIONS (5)
  - ARTHRALGIA [None]
  - GAIT DISTURBANCE [None]
  - NEPHROGENIC FIBROSING DERMOPATHY [None]
  - RENAL TRANSPLANT [None]
  - SKIN INDURATION [None]
